FAERS Safety Report 8252112-2 (Version None)
Quarter: 2012Q2

REPORT INFORMATION
  Report Type: 
  Country: None (occurrence: None)
  Receive Date: 20120402
  Receipt Date: 20110613
  Transmission Date: 20120825
  Serious: No
  Sender: FDA-Public Use
  Company Number: US-ABBOTT-11P-163-0731872-00

PATIENT
  Sex: Male

DRUGS (4)
  1. UNKNOWN STEROID NASAL INHALER [Concomitant]
     Indication: PRODUCT USED FOR UNKNOWN INDICATION
  2. ANDROGEL [Suspect]
     Indication: BLOOD TESTOSTERONE DECREASED
     Dosage: GEL PACKETS
     Dates: start: 20110301, end: 20110501
  3. ANDROGEL [Suspect]
     Dates: start: 20110502
  4. UNKNOWN SELECTIVE SEROTONIN REUPTAKE INHIBITOR [Concomitant]
     Indication: DEPRESSION

REACTIONS (1)
  - BLOOD TESTOSTERONE DECREASED [None]
